FAERS Safety Report 10227168 (Version 1)
Quarter: 2014Q2

REPORT INFORMATION
  Report Type: Spontaneous
  Country: NZ (occurrence: NZ)
  Receive Date: 20140610
  Receipt Date: 20140610
  Transmission Date: 20141212
  Serious: Yes (Other)
  Sender: FDA-Public Use
  Company Number: NZ-BAYER-2014-078532

PATIENT
  Sex: Male

DRUGS (1)
  1. KOGENATE FS [Suspect]

REACTIONS (1)
  - Haemorrhage [None]
